FAERS Safety Report 7772112-6 (Version None)
Quarter: 2011Q3

REPORT INFORMATION
  Report Type: 
  Country: None (occurrence: None)
  Receive Date: 20110922
  Receipt Date: 20101221
  Transmission Date: 20111222
  Serious: No
  Sender: FDA-Public Use
  Company Number: US-ASTRAZENECA-2010SE60187

PATIENT
  Age: 67 Year
  Sex: Female
  Weight: 93.4 kg

DRUGS (1)
  1. SEROQUEL [Suspect]
     Route: 048
     Dates: start: 20070101, end: 20101101

REACTIONS (2)
  - DRUG DOSE OMISSION [None]
  - INSOMNIA [None]
